FAERS Safety Report 6120401-3 (Version None)
Quarter: 2009Q1

REPORT INFORMATION
  Report Type: 
  Country: None (occurrence: None)
  Receive Date: 20090317
  Receipt Date: 20090305
  Transmission Date: 20090719
  Serious: Yes (Other)
  Sender: FDA-Public Use
  Company Number: PHHY2008JP24116

PATIENT
  Sex: Male
  Weight: 46 kg

DRUGS (12)
  1. ZOMETA [Suspect]
     Indication: METASTASES TO BONE
     Dosage: 4 MG, QMO
     Route: 042
     Dates: start: 20070920, end: 20080819
  2. MOBIC [Concomitant]
     Indication: ANALGESIA
     Dosage: 10 MG
     Route: 048
     Dates: start: 20060901, end: 20080828
  3. CALCIUM LACTATE [Concomitant]
     Indication: MINERAL SUPPLEMENTATION
     Dosage: 3 G
     Route: 048
     Dates: start: 20071019
  4. OXYCONTIN [Concomitant]
     Indication: ANALGESIA
     Dosage: 20 MG
     Route: 048
     Dates: start: 20060901
  5. ESTRAMUSTINE PHOSPHATE SODIUM [Concomitant]
     Indication: PROSTATE CANCER
     Dosage: 2 DF
     Route: 048
     Dates: start: 20071011
  6. DEXAMETHASONE [Concomitant]
     Indication: PROSTATE CANCER
     Dosage: 1 MG
     Route: 048
     Dates: start: 20071102
  7. GASTER D [Concomitant]
     Indication: PEPTIC ULCER
     Dosage: 20 MG
     Route: 048
     Dates: start: 20071102, end: 20080828
  8. MAGLAX [Concomitant]
     Dosage: 990 MG
     Route: 048
     Dates: start: 20060901
  9. LASIX [Concomitant]
     Indication: POLYURIA
     Dosage: 10 MG
     Route: 048
     Dates: start: 20080627, end: 20080704
  10. OMEPRAL [Concomitant]
     Indication: PEPTIC ULCER
     Dosage: 20 MG
     Route: 048
     Dates: start: 20080828
  11. HARNAL [Concomitant]
     Dosage: 0.2MG
     Route: 048
     Dates: start: 20080829
  12. MUCOSTA [Concomitant]
     Dosage: 300 MG
     Route: 048
     Dates: start: 20080828

REACTIONS (15)
  - BLOOD ALKALINE PHOSPHATASE INCREASED [None]
  - BLOOD GLUCOSE INCREASED [None]
  - BLOOD POTASSIUM INCREASED [None]
  - BLOOD UREA INCREASED [None]
  - BONE DISORDER [None]
  - DENTAL CARE [None]
  - GINGIVAL DISORDER [None]
  - GINGIVAL PAIN [None]
  - HAEMATOCRIT DECREASED [None]
  - HAEMOGLOBIN DECREASED [None]
  - HYPOCALCAEMIA [None]
  - OSTEOMYELITIS [None]
  - OSTEONECROSIS [None]
  - PURULENT DISCHARGE [None]
  - RED BLOOD CELL COUNT DECREASED [None]
